FAERS Safety Report 24112605 (Version 1)
Quarter: 2024Q3

REPORT INFORMATION
  Report Type: Spontaneous
  Country: CA (occurrence: None)
  Receive Date: 20240719
  Receipt Date: 20240719
  Transmission Date: 20241017
  Serious: Yes (Other)
  Sender: ASTRAZENECA
  Company Number: 2024A163800

PATIENT
  Age: 74 Year
  Sex: Male

DRUGS (15)
  1. OMEPRAZOLE [Suspect]
     Active Substance: OMEPRAZOLE
     Dosage: UNKNOWN
  2. LIDOCAINE HYDROCHLORIDE [Suspect]
     Active Substance: LIDOCAINE HYDROCHLORIDE
     Dosage: LIQUID PARENTERAL (UNSPECIFIED)
  3. ONDANSETRON HYDROCHLORIDE [Suspect]
     Active Substance: ONDANSETRON HYDROCHLORIDE
  4. BISOPROLOL [Suspect]
     Active Substance: BISOPROLOL\BISOPROLOL FUMARATE
  5. CALCIUM CARBONATE [Suspect]
     Active Substance: CALCIUM CARBONATE
  6. CHOLECALCIFEROL [Suspect]
     Active Substance: CHOLECALCIFEROL
  7. DENOSUMAB [Suspect]
     Active Substance: DENOSUMAB
  8. DEXAMETHASONE [Suspect]
     Active Substance: DEXAMETHASONE
  9. FAMOTIDINE [Suspect]
     Active Substance: FAMOTIDINE
  10. METOCLOPRAMIDE [Suspect]
     Active Substance: METOCLOPRAMIDE
  11. MORPHINE HYDROCHLORIDE [Suspect]
     Active Substance: MORPHINE HYDROCHLORIDE
  12. IRON\VITAMINS [Suspect]
     Active Substance: IRON\VITAMINS
  13. POLYETHYLENE GLYCOL [Suspect]
     Active Substance: POLYETHYLENE GLYCOL
  14. SENNOSIDES [Suspect]
     Active Substance: SENNOSIDES
  15. FOLIC ACID [Concomitant]
     Active Substance: FOLIC ACID

REACTIONS (1)
  - Febrile neutropenia [Unknown]
